FAERS Safety Report 9231716 (Version 2)
Quarter: 2013Q2

REPORT INFORMATION
  Report Type: Spontaneous
  Country: US (occurrence: US)
  Receive Date: 20130415
  Receipt Date: 20130506
  Transmission Date: 20140414
  Serious: Yes (Other)
  Sender: FDA-Public Use
  Company Number: US-PFIZER INC-2013114059

PATIENT
  Age: 58 Year
  Sex: Female

DRUGS (5)
  1. GEODON [Suspect]
     Dosage: UNK
  2. ATIVAN [Suspect]
     Dosage: UNK
  3. HALDOL [Suspect]
     Dosage: UNK
  4. ZYPREXA [Suspect]
     Dosage: UNK
  5. RISPERDAL [Suspect]
     Dosage: UNK

REACTIONS (19)
  - Apparent death [Unknown]
  - Aphagia [Unknown]
  - Diabetes mellitus [Unknown]
  - Respiratory disorder [Unknown]
  - Dyspnoea [Recovered/Resolved with Sequelae]
  - Drug hypersensitivity [Unknown]
  - Chest pain [Unknown]
  - Oral disorder [Unknown]
  - Binge eating [Unknown]
  - Toxicity to various agents [Unknown]
  - Obesity [Unknown]
  - Hepatic steatosis [Unknown]
  - Polyp [Unknown]
  - Asthma [Unknown]
  - Wound [Unknown]
  - Mental disorder [Unknown]
  - Abnormal behaviour [Unknown]
  - Lung disorder [Unknown]
  - Muscle spasms [Unknown]
